FAERS Safety Report 5237089-6 (Version None)
Quarter: 2007Q1

REPORT INFORMATION
  Report Type: 
  Country: None (occurrence: None)
  Receive Date: 20061208
  Receipt Date: 20050302
  Transmission Date: 20070707
  Serious: Yes (Other)
  Sender: FDA-Public Use
  Company Number: 2005UW03369

PATIENT
  Sex: Female

DRUGS (4)
  1. CRESTOR [Suspect]
     Indication: HYPERCHOLESTEROLAEMIA
     Dosage: 10 MG PO
     Route: 048
     Dates: start: 20041001, end: 20041101
  2. BLOOD PRESSURE MEDICATION [Concomitant]
  3. DIURETIC [Concomitant]
  4. HEARTBURN MEDICATION [Concomitant]

REACTIONS (2)
  - FATIGUE [None]
  - SKIN DISCOLOURATION [None]
